FAERS Safety Report 10449107 (Version 1)
Quarter: 2014Q3

REPORT INFORMATION
  Report Type: Spontaneous
  Country: US (occurrence: None)
  Receive Date: 20140911
  Receipt Date: 20140911
  Transmission Date: 20150326
  Serious: Yes (Disabling)
  Sender: FDA-Public Use
  Company Number: None

PATIENT
  Age: 71 Year
  Sex: Male
  Weight: 87.09 kg

DRUGS (14)
  1. LINZESS [Suspect]
     Active Substance: LINACLOTIDE
     Indication: ABDOMINAL PAIN UPPER
     Dosage: 145 UG, 4 PILLS, 1 DAY 30 MIN BEFORE MEAL, MOUTH
     Route: 048
     Dates: start: 20140818, end: 20140825
  2. QUERCETIN-BROMELAIN [Concomitant]
  3. LINZESS [Suspect]
     Active Substance: LINACLOTIDE
     Indication: WEIGHT DECREASED
     Dosage: 145 UG, 4 PILLS, 1 DAY 30 MIN BEFORE MEAL, MOUTH
     Route: 048
     Dates: start: 20140818, end: 20140825
  4. VITAMIN D3 [Concomitant]
     Active Substance: CHOLECALCIFEROL
  5. ZYFLAMEND [Concomitant]
  6. LINZESS [Suspect]
     Active Substance: LINACLOTIDE
     Indication: FLATULENCE
     Dosage: 145 UG, 4 PILLS, 1 DAY 30 MIN BEFORE MEAL, MOUTH
     Route: 048
     Dates: start: 20140818, end: 20140825
  7. PROSTANEX [Concomitant]
  8. LUNESTA [Concomitant]
     Active Substance: ESZOPICLONE
  9. CIALIS [Concomitant]
     Active Substance: TADALAFIL
  10. ASPIRIN. [Concomitant]
     Active Substance: ASPIRIN
  11. BROMELAIN [Concomitant]
     Active Substance: BROMELAINS
  12. LINZESS [Suspect]
     Active Substance: LINACLOTIDE
     Indication: SMALL INTESTINAL OBSTRUCTION
     Dosage: 145 UG, 4 PILLS, 1 DAY 30 MIN BEFORE MEAL, MOUTH
     Route: 048
     Dates: start: 20140818, end: 20140825
  13. LINZESS [Suspect]
     Active Substance: LINACLOTIDE
     Indication: ABDOMINAL DISTENSION
     Dosage: 145 UG, 4 PILLS, 1 DAY 30 MIN BEFORE MEAL, MOUTH
     Route: 048
     Dates: start: 20140818, end: 20140825
  14. REPAIR VITE [Concomitant]

REACTIONS (9)
  - Haemorrhoids [None]
  - Flatulence [None]
  - Abdominal distension [None]
  - Dehydration [None]
  - Diarrhoea [None]
  - Epigastric discomfort [None]
  - Weight decreased [None]
  - Dizziness [None]
  - Dysentery [None]

NARRATIVE: CASE EVENT DATE: 20140818
